FAERS Safety Report 24990689 (Version 1)
Quarter: 2025Q1

REPORT INFORMATION
  Report Type: Spontaneous
  Country: DE (occurrence: DE)
  Receive Date: 20250220
  Receipt Date: 20250220
  Transmission Date: 20250409
  Serious: Yes (Other)
  Sender: INSUD PHARMA
  Company Number: DE-EXELTIS PHARMACEUTICAL HOLDING, S.L.-2502DE00847

PATIENT
  Sex: Female
  Weight: 68 kg

DRUGS (1)
  1. DROSPIRENONE [Suspect]
     Active Substance: DROSPIRENONE
     Indication: Contraception
     Dosage: 4 MILLIGRAM, QD
     Route: 065
     Dates: start: 2021

REACTIONS (3)
  - Pregnancy on oral contraceptive [Recovered/Resolved]
  - Abortion spontaneous [Recovered/Resolved]
  - Drug ineffective [Recovered/Resolved]
